FAERS Safety Report 8157065-3 (Version None)
Quarter: 2012Q1

REPORT INFORMATION
  Report Type: 
  Country: None (occurrence: None)
  Receive Date: 20120222
  Receipt Date: 20120216
  Transmission Date: 20120608
  Serious: Yes (Hospitalization)
  Sender: FDA-Public Use
  Company Number: JP-ROCHE-1010773

PATIENT
  Sex: Female
  Weight: 45 kg

DRUGS (11)
  1. GLAKAY [Concomitant]
     Route: 048
  2. FOSRENOL [Concomitant]
     Route: 048
  3. MIRCERA [Suspect]
     Indication: NEPHROGENIC ANAEMIA
     Route: 042
     Dates: start: 20110907, end: 20111014
  4. CINACALCET HYDROCHLORIDE [Concomitant]
     Route: 048
  5. RABEPRAZOLE SODIUM [Concomitant]
     Route: 048
  6. URSO 250 [Concomitant]
     Route: 048
  7. RISUMIC [Concomitant]
     Dosage: IN FRONT OF HD
     Route: 048
  8. WASSER V [Concomitant]
     Route: 048
  9. LAC-B [Concomitant]
     Route: 048
  10. GASTROM [Concomitant]
     Route: 048
  11. MUCOSTA [Concomitant]
     Route: 048

REACTIONS (1)
  - PANCYTOPENIA [None]
